FAERS Safety Report 7298812-2 (Version None)
Quarter: 2011Q1

REPORT INFORMATION
  Report Type: 
  Country: None (occurrence: None)
  Receive Date: 20110217
  Receipt Date: 20110209
  Transmission Date: 20110831
  Serious: Yes (Hospitalization)
  Sender: FDA-Public Use
  Company Number: DK-ROCHE-755531

PATIENT
  Sex: Female
  Weight: 49 kg

DRUGS (14)
  1. ROACTEMRA [Suspect]
     Dosage: 9.8MG/KG, TOTAL MONTHLY DOSE: 480 MG
     Route: 042
     Dates: start: 20100824, end: 20101201
  2. METHOTREXATE [Suspect]
     Indication: RHEUMATOID ARTHRITIS
     Dosage: FREQUENCY:QWK
     Route: 048
     Dates: start: 20080615
  3. METHOTREXATE [Suspect]
     Route: 048
     Dates: start: 20080924
  4. PREDNISOLONE [Suspect]
     Indication: RHEUMATOID ARTHRITIS
     Dosage: DESE: 5 - 7.5 MG
     Route: 048
     Dates: start: 20081001
  5. SALAZOPYRIN [Concomitant]
     Dates: start: 20080331
  6. ROACTEMRA [Suspect]
     Dosage: DOE MAINTAINED
     Route: 042
     Dates: start: 20100920
  7. CORTICOSTEROIDS [Concomitant]
     Dosage: FREQUENCY: DAILY
     Route: 048
  8. PREDNISOLONE [Suspect]
     Dosage: FREQUENCY: QD
     Route: 048
     Dates: start: 20100427
  9. ROACTEMRA [Suspect]
     Dosage: DOSE MAINTAINED
     Route: 042
     Dates: start: 20101014
  10. DICLOFENAC [Concomitant]
     Dosage: NSAIDS, FREQUENCY: P.N.
     Route: 048
  11. ROACTEMRA [Suspect]
     Dosage: DOSE MAINTAINED
     Route: 042
     Dates: start: 20101115
  12. METHOTREXATE [Concomitant]
     Route: 048
  13. HYDROXYCHLOROQUINE [Concomitant]
     Dates: start: 20080915
  14. ENBREL [Concomitant]
     Dates: start: 20090810

REACTIONS (1)
  - ABDOMINAL ABSCESS [None]
